FAERS Safety Report 18275545 (Version 1)
Quarter: 2020Q3

REPORT INFORMATION
  Report Type: Spontaneous
  Country: FR (occurrence: FR)
  Receive Date: 20200916
  Receipt Date: 20200916
  Transmission Date: 20201103
  Serious: Yes (Hospitalization, Other)
  Sender: FDA-Public Use
  Company Number: FR-REGENERON PHARMACEUTICALS, INC.-2020-75355

PATIENT

DRUGS (5)
  1. BETADINE [Concomitant]
     Active Substance: POVIDONE-IODINE
     Indication: PRODUCT USED FOR UNKNOWN INDICATION
     Dosage: 1 GTT
  2. EYLEA [Suspect]
     Active Substance: AFLIBERCEPT
     Dosage: OD (TOTAL OF 28 INJECTIONS)
     Route: 031
     Dates: start: 20200824, end: 20200824
  3. EYLEA [Suspect]
     Active Substance: AFLIBERCEPT
     Dosage: OD
     Route: 031
     Dates: start: 20200609, end: 20200609
  4. EYLEA [Suspect]
     Active Substance: AFLIBERCEPT
     Dosage: OD
     Route: 031
     Dates: start: 20200707, end: 20200707
  5. EYLEA [Suspect]
     Active Substance: AFLIBERCEPT
     Indication: AGE-RELATED MACULAR DEGENERATION
     Dosage: OD
     Route: 031
     Dates: start: 20200512, end: 20200512

REACTIONS (2)
  - Endophthalmitis [Recovered/Resolved]
  - Blindness unilateral [Recovering/Resolving]

NARRATIVE: CASE EVENT DATE: 20200830
